FAERS Safety Report 6444359-2 (Version None)
Quarter: 2009Q4

REPORT INFORMATION
  Report Type: 
  Country: None (occurrence: None)
  Receive Date: 20091118
  Receipt Date: 20091113
  Transmission Date: 20100525
  Serious: Yes (Hospitalization)
  Sender: FDA-Public Use
  Company Number: US-BRISTOL-MYERS SQUIBB COMPANY-14793012

PATIENT
  Age: 39 Year
  Sex: Female
  Weight: 65 kg

DRUGS (5)
  1. IXEMPRA KIT [Suspect]
     Indication: CERVIX CARCINOMA
     Dosage: RECENT INFUSION=28JUN09;CYC=21DAYS;6MG/M2 IV OVER 60 MINS ON DAYS1-5
     Route: 042
     Dates: start: 20090309
  2. CLONAZEPAM [Concomitant]
  3. LEXAPRO [Concomitant]
  4. MORPHINE [Concomitant]
     Dosage: MORPHINE CR
  5. VICODIN [Concomitant]

REACTIONS (3)
  - BLADDER OBSTRUCTION [None]
  - CYSTITIS [None]
  - DEPRESSION [None]
